FAERS Safety Report 10494034 (Version 2)
Quarter: 2014Q4

REPORT INFORMATION
  Report Type: Spontaneous
  Country: US (occurrence: US)
  Receive Date: 20141003
  Receipt Date: 20141106
  Transmission Date: 20150528
  Serious: No
  Sender: FDA-Public Use
  Company Number: US-BIOGENIDEC-2014BI099557

PATIENT
  Age: 71 Year
  Sex: Female

DRUGS (12)
  1. TECFIDERA [Suspect]
     Active Substance: DIMETHYL FUMARATE
     Indication: MULTIPLE SCLEROSIS
     Dates: start: 20140823, end: 20140901
  2. PRIMIDONE. [Concomitant]
     Active Substance: PRIMIDONE
     Indication: OESOPHAGEAL SPASM
  3. METOPROLOL [Concomitant]
     Active Substance: METOPROLOL
     Indication: MITRAL VALVE PROLAPSE
  4. TECFIDERA [Suspect]
     Active Substance: DIMETHYL FUMARATE
     Indication: MULTIPLE SCLEROSIS
     Dates: start: 20140901
  5. VALSARTAN. [Concomitant]
     Active Substance: VALSARTAN
     Indication: BLOOD PRESSURE INCREASED
  6. GABAPENTIN. [Concomitant]
     Active Substance: GABAPENTIN
     Indication: OESOPHAGEAL SPASM
  7. DOMPERIDONE [Concomitant]
     Active Substance: DOMPERIDONE
     Indication: OESOPHAGEAL SPASM
  8. ALEVE [Concomitant]
     Active Substance: NAPROXEN SODIUM
     Indication: ARTHRALGIA
  9. TENORMIN [Concomitant]
     Active Substance: ATENOLOL
     Indication: MITRAL VALVE PROLAPSE
  10. DIOVAN [Concomitant]
     Active Substance: VALSARTAN
     Indication: BLOOD PRESSURE INCREASED
  11. TECFIDERA [Suspect]
     Active Substance: DIMETHYL FUMARATE
     Indication: MULTIPLE SCLEROSIS
     Dates: start: 20140915
  12. NITROGLYCERIN. [Concomitant]
     Active Substance: NITROGLYCERIN
     Indication: OESOPHAGEAL SPASM

REACTIONS (8)
  - Feeling abnormal [Unknown]
  - Cognitive disorder [Unknown]
  - Underdose [Not Recovered/Not Resolved]
  - Arrhythmia [Not Recovered/Not Resolved]
  - Tachycardia [Not Recovered/Not Resolved]
  - Emotional disorder [Unknown]
  - Nausea [Recovered/Resolved]
  - Dyspepsia [Unknown]

NARRATIVE: CASE EVENT DATE: 201408
